FAERS Safety Report 19051143 (Version 1)
Quarter: 2021Q1

REPORT INFORMATION
  Report Type: Spontaneous
  Country: US (occurrence: US)
  Receive Date: 20210324
  Receipt Date: 20210324
  Transmission Date: 20210420
  Serious: No
  Sender: FDA-Public Use
  Company Number: US-ALLERGAN-2104125US

PATIENT
  Sex: Female

DRUGS (1)
  1. DELZICOL [Suspect]
     Active Substance: MESALAMINE
     Indication: IRRITABLE BOWEL SYNDROME
     Dosage: 2 DF, BID
     Route: 048

REACTIONS (3)
  - Diarrhoea [Unknown]
  - Off label use [Unknown]
  - Therapy interrupted [Unknown]
